FAERS Safety Report 10462442 (Version 11)
Quarter: 2019Q1

REPORT INFORMATION
  Report Type: Report from Study
  Country: KR (occurrence: KR)
  Receive Date: 20140918
  Receipt Date: 20190319
  Transmission Date: 20190417
  Serious: Yes (Hospitalization, Other)
  Sender: FDA-Public Use
  Company Number: KR-BAYER-2014-138110

PATIENT
  Age: 22 Year
  Sex: Female

DRUGS (1)
  1. BETAFERON [Suspect]
     Active Substance: INTERFERON BETA-1B
     Indication: MULTIPLE SCLEROSIS
     Dosage: 1 ML, QOD
     Route: 058
     Dates: start: 20140318

REACTIONS (19)
  - Depressed mood [None]
  - Diplopia [Recovering/Resolving]
  - Disease recurrence [Not Recovered/Not Resolved]
  - Depression [Not Recovered/Not Resolved]
  - Hunger [Not Recovered/Not Resolved]
  - Insomnia [Not Recovered/Not Resolved]
  - Eating disorder [None]
  - Crying [Not Recovered/Not Resolved]
  - Bipolar disorder [None]
  - Diplopia [Not Recovered/Not Resolved]
  - Depressed mood [None]
  - Hypoaesthesia [Recovered/Resolved]
  - Multiple sclerosis [Recovering/Resolving]
  - Dizziness [Not Recovered/Not Resolved]
  - Headache [Not Recovered/Not Resolved]
  - Multiple sclerosis [None]
  - Multiple sclerosis [None]
  - Injection site pain [None]
  - Hypoaesthesia [Recovered/Resolved]

NARRATIVE: CASE EVENT DATE: 2015
